FAERS Safety Report 5007488-6 (Version None)
Quarter: 2006Q2

REPORT INFORMATION
  Report Type: 
  Country: None (occurrence: None)
  Receive Date: 20060517
  Receipt Date: 20060510
  Transmission Date: 20061013
  Serious: Yes (Hospitalization)
  Sender: FDA-Public Use
  Company Number: TAP2006Q00845

PATIENT
  Age: 90 Year
  Sex: Female
  Weight: 61 kg

DRUGS (1)
  1. LUPRON DEPOT [Suspect]
     Indication: PROSTATE CANCER
     Dosage: 7.5 MG, 1 IN 1 M, INTRAMUSCULAR
     Route: 030
     Dates: start: 19900101, end: 19980101

REACTIONS (2)
  - ABASIA [None]
  - ANAEMIA [None]
